FAERS Safety Report 6194687-3 (Version None)
Quarter: 2009Q2

REPORT INFORMATION
  Report Type: 
  Country: None (occurrence: None)
  Receive Date: 20090515
  Receipt Date: 20090507
  Transmission Date: 20091009
  Serious: Yes (Hospitalization, Disabling)
  Sender: FDA-Public Use
  Company Number: 230245K09BRA

PATIENT
  Sex: Male

DRUGS (10)
  1. REBIF [Suspect]
     Indication: RELAPSING-REMITTING MULTIPLE SCLEROSIS
     Dosage: 44 MCG, 3 IN 1 WEEKS
     Dates: start: 20071123
  2. PIRACETAM (PIRACETAM) [Concomitant]
  3. DIHYDROERGOCTRISTINE (DIHYDROERGOCRISTINE) [Concomitant]
  4. CINNARIZINE (CINNARIZINE) [Concomitant]
  5. CLONAZEPAM [Concomitant]
  6. PAROXETIN (PAROXETIN) [Concomitant]
  7. METFORMIN HCL [Concomitant]
  8. SINVASTATIN [SIMVASTATIN] (SIMVASTATIN) [Concomitant]
  9. ACETYLSALICYLIC ACID SRT [Concomitant]
  10. LIPLESS (CIPROFIBRATE) (CIPROFFIBRATE) [Concomitant]

REACTIONS (2)
  - BLINDNESS UNILATERAL [None]
  - GLAUCOMA [None]
